FAERS Safety Report 4884178-1 (Version None)
Quarter: 2005Q4

REPORT INFORMATION
  Report Type: 
  Country: None (occurrence: None)
  Receive Date: 20051201
  Receipt Date: 20050909
  Transmission Date: 20060501
  Serious: No
  Sender: FDA-Public Use
  Company Number: 2005PV001978

PATIENT
  Age: 54 Year
  Sex: Female
  Weight: 107.9561 kg

DRUGS (9)
  1. BYETTA [Suspect]
     Indication: DIABETES MELLITUS NON-INSULIN-DEPENDENT
     Dosage: SEE IMAGE
     Route: 058
     Dates: start: 20050801, end: 20050801
  2. BYETTA [Suspect]
     Dosage: 5 MCG; BID; SC
     Route: 058
     Dates: start: 20050701, end: 20050801
  3. METFORMIN [Concomitant]
  4. ACTOS [Concomitant]
  5. PROTONIX [Concomitant]
  6. LEXAPRO [Concomitant]
  7. LIPITOR [Concomitant]
  8. WATER PILL [Concomitant]
  9. BLOOD PRESSURE PILL [Concomitant]

REACTIONS (3)
  - DECREASED APPETITE [None]
  - NAUSEA [None]
  - WEIGHT DECREASED [None]
